FAERS Safety Report 9283191 (Version 1)
Quarter: 2013Q2

REPORT INFORMATION
  Report Type: Spontaneous
  Country: US (occurrence: US)
  Receive Date: 20130510
  Receipt Date: 20130510
  Transmission Date: 20140414
  Serious: No
  Sender: FDA-Public Use
  Company Number: US-GLAXOSMITHKLINE-A0987708A

PATIENT
  Age: 53 Year
  Sex: Female

DRUGS (3)
  1. TYKERB [Suspect]
     Indication: BREAST CANCER
     Dosage: 1250MG PER DAY
     Route: 048
     Dates: start: 20120626
  2. XELODA [Suspect]
     Indication: BREAST CANCER
     Dosage: 2000MG TWICE PER DAY
     Route: 048
     Dates: start: 20120627
  3. NO CONCURRENT MEDICATION [Concomitant]

REACTIONS (3)
  - Skin discolouration [Not Recovered/Not Resolved]
  - Blister [Not Recovered/Not Resolved]
  - Pain in extremity [Not Recovered/Not Resolved]
